FAERS Safety Report 26078250 (Version 1)
Quarter: 2025Q4

REPORT INFORMATION
  Report Type: Report from Study
  Country: US (occurrence: US)
  Receive Date: 20251122
  Receipt Date: 20251122
  Transmission Date: 20260118
  Serious: Yes (Other)
  Sender: AMGEN
  Company Number: US-AMGEN-USASL2025227539

PATIENT
  Age: 64 Year
  Sex: Female

DRUGS (2)
  1. REPATHA [Suspect]
     Active Substance: EVOLOCUMAB
     Indication: Blood cholesterol increased
     Dosage: UNK
     Route: 065
  2. REPATHA [Suspect]
     Active Substance: EVOLOCUMAB
     Dosage: 140 MILLIGRAM, Q2WK
     Route: 065
     Dates: start: 20251114

REACTIONS (19)
  - Dyspnoea [Recovering/Resolving]
  - Nasal congestion [Recovering/Resolving]
  - Chills [Recovering/Resolving]
  - Visual impairment [Recovering/Resolving]
  - Ear discomfort [Recovering/Resolving]
  - Pain in jaw [Recovering/Resolving]
  - Dizziness [Recovering/Resolving]
  - Toothache [Recovering/Resolving]
  - Headache [Recovering/Resolving]
  - Injection site irritation [Recovering/Resolving]
  - Drug hypersensitivity [Unknown]
  - Tinnitus [Unknown]
  - Bone pain [Unknown]
  - Abdominal pain upper [Unknown]
  - Injection site pain [Unknown]
  - Oral pain [Recovering/Resolving]
  - Back pain [Unknown]
  - Arthralgia [Recovering/Resolving]
  - Device difficult to use [Unknown]

NARRATIVE: CASE EVENT DATE: 20251114
